FAERS Safety Report 14091974 (Version 1)
Quarter: 2017Q4

REPORT INFORMATION
  Report Type: Spontaneous
  Country: US (occurrence: None)
  Receive Date: 20171014
  Receipt Date: 20171014
  Transmission Date: 20180321
  Serious: Yes (Hospitalization)
  Sender: FDA-Public Use
  Company Number: None

PATIENT
  Age: 76 Year
  Sex: Female
  Weight: 73.3 kg

DRUGS (4)
  1. METHOTREXATE. [Suspect]
     Active Substance: METHOTREXATE
     Dates: end: 20170216
  2. PREDNISONE. [Suspect]
     Active Substance: PREDNISONE
     Dates: end: 20170205
  3. VINCRISTINE SULFATE. [Suspect]
     Active Substance: VINCRISTINE SULFATE
     Dates: end: 20170202
  4. MERCAPTOPURINE. [Suspect]
     Active Substance: MERCAPTOPURINE
     Dates: end: 20170301

REACTIONS (9)
  - Colitis [None]
  - Wheezing [None]
  - Pleural effusion [None]
  - Blood pressure increased [None]
  - Dyspnoea [None]
  - Diastolic dysfunction [None]
  - Respiratory distress [None]
  - Abdominal pain [None]
  - Atelectasis [None]

NARRATIVE: CASE EVENT DATE: 20170213
